FAERS Safety Report 4459310-4 (Version None)
Quarter: 2004Q3

REPORT INFORMATION
  Report Type: 
  Country: None (occurrence: None)
  Receive Date: 20040922
  Receipt Date: 20040922
  Transmission Date: 20050211
  Serious: Yes (Other)
  Sender: FDA-Public Use
  Company Number: None

PATIENT
  Age: 44 Year
  Sex: Male

DRUGS (14)
  1. HEPARIN [Suspect]
     Indication: ANTICOAGULANT THERAPY
     Dosage: 50U/ML TITRATE INTRAVENOUS
     Route: 042
     Dates: start: 20040608, end: 20040622
  2. LEPIRUDIN [Suspect]
     Indication: ANTICOAGULANT THERAPY
     Dosage: 0.4 MG/ML TITRATE INTRAVENOUS
     Route: 042
     Dates: start: 20040625, end: 20040629
  3. OMEPRAZOLE [Concomitant]
  4. LABETALOL HCL [Concomitant]
  5. MEROPENEM [Concomitant]
  6. CEFTAZIDIME [Concomitant]
  7. CIPROFLOXACIN [Concomitant]
  8. FUROSEMIDE [Concomitant]
  9. KEPPRA [Concomitant]
  10. PHENYTOIN [Concomitant]
  11. PROCRIT [Concomitant]
  12. CO-TRIMOXAZOLE [Concomitant]
  13. VANCOMYCIN [Concomitant]
  14. RANITIDINE [Concomitant]

REACTIONS (2)
  - HEPARIN-INDUCED THROMBOCYTOPENIA [None]
  - LIVER FUNCTION TEST ABNORMAL [None]
